FAERS Safety Report 8958234 (Version 2)
Quarter: 2012Q4

REPORT INFORMATION
  Report Type: Report from Study
  Country: IT (occurrence: IT)
  Receive Date: 20121211
  Receipt Date: 20121213
  Transmission Date: 20130627
  Serious: Yes (Hospitalization)
  Sender: FDA-Public Use
  Company Number: IT-ROCHE-1163221

PATIENT
  Age: 59 Year
  Sex: Female
  Weight: 67 kg

DRUGS (4)
  1. TRASTUZUMAB [Suspect]
     Indication: BREAST CANCER
     Dosage: loading dose
     Route: 042
     Dates: start: 20121015
  2. TRASTUZUMAB [Suspect]
     Dosage: Last dose prior to SAE was on 06/Nov/2012.
     Route: 042
  3. PACLITAXEL [Suspect]
     Indication: BREAST CANCER
     Dosage: 80 mg/mq, Last dose prior to SAE was on 20/Nov/2012.
     Route: 042
     Dates: start: 20121015
  4. PERTUZUMAB [Suspect]
     Indication: BREAST CANCER
     Dosage: Last dose prior to SAE was on 06/Nov/2012.
     Route: 042
     Dates: start: 20121015

REACTIONS (1)
  - Embolism [Not Recovered/Not Resolved]
